FAERS Safety Report 9016385 (Version 1)
Quarter: 2013Q1

REPORT INFORMATION
  Report Type: Spontaneous
  Country: NL (occurrence: NL)
  Receive Date: 20130116
  Receipt Date: 20130116
  Transmission Date: 20140127
  Serious: Yes (Disabling)
  Sender: FDA-Public Use
  Company Number: NL-EISAI INC-E3810-06123-SPO-NL

PATIENT
  Sex: Male
  Weight: 78 kg

DRUGS (1)
  1. PARIET (RABEPRAZOLE) [Suspect]
     Indication: GASTROOESOPHAGEAL REFLUX DISEASE
     Route: 048
     Dates: start: 2008, end: 20120303

REACTIONS (1)
  - Sleep disorder [Not Recovered/Not Resolved]
